FAERS Safety Report 8489064-6 (Version None)
Quarter: 2012Q3

REPORT INFORMATION
  Report Type: 
  Country: None (occurrence: None)
  Receive Date: 20120705
  Receipt Date: 20120628
  Transmission Date: 20120928
  Serious: Yes (Hospitalization)
  Sender: FDA-Public Use
  Company Number: JP-BAYER-2012-036688

PATIENT
  Age: 46 Year
  Sex: Male
  Weight: 53 kg

DRUGS (30)
  1. VANCOMYCIN [Suspect]
     Indication: ENDOCARDITIS
     Dosage: DAILY DOSE 2 G
     Route: 042
     Dates: start: 20120404, end: 20120424
  2. ALBUMIN (HUMAN) [Concomitant]
  3. RABEPRAZOLE SODIUM [Concomitant]
     Dosage: 20 MG, QD
     Route: 048
  4. CEFAZOLIN SODIUM [Concomitant]
     Dosage: 1 DF, TID
     Route: 048
  5. AMPICILLIN SODIUM/SULBACTAM SODIUM [Suspect]
     Indication: ENDOCARDITIS
     Dosage: DAILY DOSE 12 G
     Route: 042
     Dates: start: 20120405, end: 20120416
  6. MIDAZOLAM HCL [Concomitant]
     Dosage: UNK
  7. JUVELA [Concomitant]
     Dosage: 200 MG, TID
     Route: 048
  8. MUCOSOLVAN [Concomitant]
     Dosage: 15 MG, TID
     Route: 048
  9. LASIX [Concomitant]
     Dosage: 20 MG, BID
     Route: 048
  10. VITANEURIN [FURSULTIAMINE HCL,HYDROXOCOBAL ACET,PYRIDOXAL PHOS,B2] [Concomitant]
     Dosage: 1 DF, TID
     Route: 048
  11. ENSURE PLUS [Concomitant]
     Dosage: 250 ML, BID
     Route: 048
  12. SILECE [Concomitant]
     Dosage: 4 MG, HS
     Route: 048
  13. HALCION [Concomitant]
     Dosage: 0.5 MG, HS
     Route: 048
  14. URSO 250 [Concomitant]
     Dosage: 200 MG, TID
     Route: 048
  15. MOTILIUM [Concomitant]
     Dosage: 10 MG, TID
     Route: 048
  16. FOIPAN [Concomitant]
     Dosage: 200 MG, TID
     Route: 048
  17. GASTROM [Concomitant]
     Dosage: 1.5 G, BID
     Route: 048
  18. FRESH FROZEN PLASMA [Concomitant]
  19. CINAL [ASCORBIC ACID,CALCIUM PANTOTHENATE] [Concomitant]
     Dosage: 1 DF, TID
     Route: 048
  20. GASCON [Concomitant]
     Dosage: 80 MG, TID
     Route: 048
  21. PROHEPARUM [Concomitant]
     Dosage: 1 DF, TID
     Route: 048
  22. CIPROFLOXACIN [Suspect]
     Indication: ENDOCARDITIS
  23. FENTANYL [Concomitant]
     Indication: ANAESTHESIA PROCEDURE
  24. SHOSAIKOTO EKISUKARYU CHOZAIYO [Concomitant]
     Dosage: 2.5 G, TID
     Route: 048
  25. CIPROFLOXACIN [Suspect]
     Indication: PYELONEPHRITIS
     Dosage: 300 MG, BID
     Route: 042
     Dates: start: 20120404, end: 20120515
  26. AMPICILLIN [Concomitant]
     Route: 065
  27. DIPRIVAN [Concomitant]
     Indication: ANAESTHESIA PROCEDURE
  28. STROCAIN [Concomitant]
     Dosage: 20 MG, TID
     Route: 048
  29. ERIMIN [Concomitant]
     Dosage: 5 MG, QD
     Route: 048
  30. LUVOX [Concomitant]
     Dosage: 25 MG, BID
     Route: 048

REACTIONS (2)
  - CONVULSION [None]
  - MENINGITIS [None]
